FAERS Safety Report 13682590 (Version 2)
Quarter: 2017Q2

REPORT INFORMATION
  Report Type: Spontaneous
  Country: US (occurrence: US)
  Receive Date: 20170623
  Receipt Date: 20170623
  Transmission Date: 20170830
  Serious: No
  Sender: FDA-Public Use
  Company Number: US-MALLINCKRODT-T201602107

PATIENT
  Sex: Female

DRUGS (2)
  1. H.P. ACTHAR [Suspect]
     Active Substance: CORTICOTROPIN
     Indication: NEPHROTIC SYNDROME
     Dosage: 40 UNITS ONCE WEEKLY FOR 2 WEEKS
     Route: 058
     Dates: start: 20160426, end: 20160510
  2. H.P. ACTHAR [Suspect]
     Active Substance: CORTICOTROPIN
     Indication: FOCAL SEGMENTAL GLOMERULOSCLEROSIS
     Dosage: 80 UNITS ONCE WEEKLY FOR 2 WEEKS
     Route: 058
     Dates: start: 20160510, end: 20160524

REACTIONS (2)
  - Chills [Recovered/Resolved]
  - Cold sweat [Recovered/Resolved]
